FAERS Safety Report 25041744 (Version 3)
Quarter: 2025Q2

REPORT INFORMATION
  Report Type: Spontaneous
  Country: US (occurrence: US)
  Receive Date: 20250305
  Receipt Date: 20250618
  Transmission Date: 20250717
  Serious: Yes (Disabling)
  Sender: VERTEX
  Company Number: US-VERTEX PHARMACEUTICALS-2025-003209

PATIENT
  Age: 49 Year
  Sex: Male

DRUGS (2)
  1. TRIKAFTA [Suspect]
     Active Substance: ELEXACAFTOR\IVACAFTOR\TEZACAFTOR
     Indication: Cystic fibrosis
     Dosage: 2 ORANGE TABS IN AM, 1 BLUE TAB IM PM
     Route: 048
     Dates: start: 20241124, end: 2025
  2. AZTREONAM LYSINE [Suspect]
     Active Substance: AZTREONAM LYSINE
     Indication: Cystic fibrosis
     Dosage: 28 DAYS ON + 28 DAYS OFF, INHALE 1 VIAL VIA PARI ALTERA NEBULIZER
     Dates: start: 20241029

REACTIONS (2)
  - Insomnia [Unknown]
  - Fatigue [Unknown]
